FAERS Safety Report 23171499 (Version 2)
Quarter: 2023Q4

REPORT INFORMATION
  Report Type: Spontaneous
  Country: US (occurrence: US)
  Receive Date: 20231110
  Receipt Date: 20231123
  Transmission Date: 20240110
  Serious: No
  Sender: FDA-Public Use
  Company Number: US-SA-SAC20231107001615

PATIENT
  Age: 48 Year
  Sex: Male

DRUGS (1)
  1. DUPIXENT [Suspect]
     Active Substance: DUPILUMAB
     Indication: Nasal polyps
     Dosage: 300 MG, QOW
     Route: 058
     Dates: start: 20231010

REACTIONS (7)
  - Pain [Unknown]
  - Pyrexia [Unknown]
  - Abdominal pain upper [Unknown]
  - Constipation [Unknown]
  - Gout [Unknown]
  - Insomnia [Unknown]
  - Rash [Unknown]

NARRATIVE: CASE EVENT DATE: 20230101
